FAERS Safety Report 5162931-7 (Version None)
Quarter: 2006Q4

REPORT INFORMATION
  Report Type: 
  Country: None (occurrence: None)
  Receive Date: 20061201
  Receipt Date: 20061121
  Transmission Date: 20070319
  Serious: Yes (Death)
  Sender: FDA-Public Use
  Company Number: FR-SANOFI-SYNTHELABO-A02200602944

PATIENT
  Age: 84 Year
  Sex: Female
  Weight: 58 kg

DRUGS (6)
  1. LANZOR [Suspect]
     Indication: DRUG USE FOR UNKNOWN INDICATION
     Route: 048
     Dates: end: 20061026
  2. TRIVASTAL [Suspect]
     Indication: PARKINSONIAN REST TREMOR
     Route: 048
     Dates: start: 20010101, end: 20061026
  3. XENAZINE [Suspect]
     Indication: DRUG USE FOR UNKNOWN INDICATION
     Route: 048
     Dates: start: 20061027, end: 20061028
  4. MODOPAR [Suspect]
     Indication: DRUG USE FOR UNKNOWN INDICATION
     Route: 048
     Dates: start: 20010101, end: 20061026
  5. ZOLPIDEM TARTRATE [Suspect]
     Indication: DRUG USE FOR UNKNOWN INDICATION
     Route: 048
     Dates: end: 20061026
  6. SERMION [Suspect]
     Indication: DRUG USE FOR UNKNOWN INDICATION
     Route: 048
     Dates: end: 20061026

REACTIONS (8)
  - ARRHYTHMIA [None]
  - BALLISMUS [None]
  - C-REACTIVE PROTEIN INCREASED [None]
  - CARDIAC ARREST [None]
  - DYSKINESIA [None]
  - FATIGUE [None]
  - HUNTINGTON'S CHOREA [None]
  - SUDDEN DEATH [None]
